FAERS Safety Report 7362059-1 (Version None)
Quarter: 2011Q1

REPORT INFORMATION
  Report Type: 
  Country: None (occurrence: None)
  Receive Date: 20110318
  Receipt Date: 20110314
  Transmission Date: 20110831
  Serious: Yes (Other)
  Sender: FDA-Public Use
  Company Number: GB-PFIZER INC-2011037166

PATIENT
  Age: 43 Year
  Sex: Female
  Weight: 75 kg

DRUGS (4)
  1. CITALOPRAM [Concomitant]
     Indication: ANXIETY
     Dosage: 10 MG, 1X/DAY
     Route: 048
     Dates: start: 20080101
  2. TIMOLOL [Concomitant]
     Indication: GLAUCOMA
     Dosage: 1 DF, 2X/DAY, IN EACH EYE
     Route: 047
     Dates: start: 20080101
  3. PROPRANOLOL [Concomitant]
     Indication: PALPITATIONS
     Dosage: 80 MG, 1X/DAY
     Route: 048
     Dates: start: 20080101
  4. XALATAN [Suspect]
     Indication: GLAUCOMA
     Dosage: ONE DROP IN BOTH EYES AT NIGHT
     Route: 047
     Dates: start: 20110211

REACTIONS (4)
  - OCULAR HYPERAEMIA [None]
  - EYELID MARGIN CRUSTING [None]
  - EYE OEDEMA [None]
  - EYE DISCHARGE [None]
